FAERS Safety Report 23682212 (Version 2)
Quarter: 2024Q2

REPORT INFORMATION
  Report Type: Report from Study
  Country: CA (occurrence: CA)
  Receive Date: 20240328
  Receipt Date: 20240522
  Transmission Date: 20240716
  Serious: Yes (Other)
  Sender: FDA-Public Use
  Company Number: CA-JNJFOC-20230202038

PATIENT
  Age: 71 Year
  Sex: Female

DRUGS (2)
  1. SIMPONI [Suspect]
     Active Substance: GOLIMUMAB
     Indication: Ankylosing spondylitis
     Route: 058
     Dates: start: 20190829
  2. COVID-19 VACCINE [Concomitant]
     Indication: Product used for unknown indication
     Route: 030

REACTIONS (2)
  - Dermatitis atopic [Unknown]
  - Nasopharyngitis [Recovered/Resolved]
